FAERS Safety Report 21135717 (Version 1)
Quarter: 2022Q3

REPORT INFORMATION
  Report Type: Spontaneous
  Country: CA (occurrence: CA)
  Receive Date: 20220727
  Receipt Date: 20220727
  Transmission Date: 20221027
  Serious: Yes (Hospitalization, Other)
  Sender: FDA-Public Use
  Company Number: CA-BAXTER-2022BAX015696

PATIENT
  Age: 19 Year
  Sex: Male
  Weight: 120 kg

DRUGS (17)
  1. CYCLOPHOSPHAMIDE [Suspect]
     Active Substance: CYCLOPHOSPHAMIDE
     Indication: Neoplasm malignant
     Dosage: (620.0 MILLIGRAM, 1 EVERY 1 DAYS, DOSAGE FORM: NOT SPECIFIED, INTRAVENOUS (NOT OTHERWISE SPECIFIED)
     Route: 042
  2. TOPOTECAN HYDROCHLORIDE [Suspect]
     Active Substance: TOPOTECAN HYDROCHLORIDE
     Indication: Neoplasm malignant
     Dosage: (1.88 MILLIGRAM, 1 EVERY 1 DAYS, INTRAVENOUS (NOT OTHERWISE SPECIFIED)
     Route: 042
  3. VENETOCLAX [Suspect]
     Active Substance: VENETOCLAX
     Indication: Neoplasm malignant
     Dosage: (800.0 MILLIGRAM, DOSAGE FORM: TABLETS)
     Route: 048
  4. CANNABIS SATIVA FLOWERING TOP [Concomitant]
     Active Substance: CANNABIS SATIVA FLOWERING TOP
     Indication: Nausea
     Dosage: (1.0 DOSAGE FORMS, 4 EVERY 1 DAYS)
     Route: 050
  5. HYDROMORPHONE [Concomitant]
     Active Substance: HYDROMORPHONE
     Indication: Myalgia
     Dosage: (1.0 MILLIGRAM, 1 EVERY 3 HOURS, DOSAGE FORM: NOT SPECIFIED)
     Route: 065
  6. LORAZEPAM [Concomitant]
     Active Substance: LORAZEPAM
     Indication: Nausea
     Dosage: (1.0 MILLIGRAM, 1 EVERY 6 HOURS, DOSAGE FORM: NOT SPECIFIED)
     Route: 060
  7. LORAZEPAM [Concomitant]
     Active Substance: LORAZEPAM
     Dosage: (1.0 MILLIGRAM, 1 EVERY 6 HOURS, INTRAVENOUS (NOT OTHERWISE SPECIFIED)
     Route: 042
  8. LORAZEPAM [Concomitant]
     Active Substance: LORAZEPAM
     Dosage: (1.0 MILLIGRAM, 1 EVERY 8 HOURS)
     Route: 048
  9. LORAZEPAM [Concomitant]
     Active Substance: LORAZEPAM
     Dosage: (0.5 MILLIGRAM, 1 EVERY 6 HOURS)
     Route: 048
  10. LORAZEPAM [Concomitant]
     Active Substance: LORAZEPAM
     Dosage: (1.0 MILLIGRAM, 1 EVERY 6 HOURS)
     Route: 060
  11. LORAZEPAM [Concomitant]
     Active Substance: LORAZEPAM
     Dosage: (1.0 MILLIGRAM, 1 EVERY 6 HOURS, INTRAVENOUS (NOT OTHERWISE SPECIFIED)
     Route: 042
  12. LORAZEPAM [Concomitant]
     Active Substance: LORAZEPAM
     Dosage: (1.0 MILLIGRAM, 1 EVERY 6 HOURS, INTRAVENOUS (NOT OTHERWISE SPECIFIED)
     Route: 042
  13. LORAZEPAM [Concomitant]
     Active Substance: LORAZEPAM
     Dosage: (1.0 MILLIGRAM, 1 EVERY 6 HOURS, INTRAVENOUS (NOT OTHERWISE SPECIFIED)
     Route: 042
  14. LORAZEPAM [Concomitant]
     Active Substance: LORAZEPAM
     Dosage: UNK
  15. ONDANSETRON [Concomitant]
     Active Substance: ONDANSETRON
     Indication: Nausea
     Dosage: (16.0 MILLIGRAM, DOSAGE FORM: NOT SPECIFIED)
     Route: 048
  16. ONDANSETRON [Concomitant]
     Active Substance: ONDANSETRON
     Dosage: (8.0 MILLIGRAM)
     Route: 048
  17. SILDENAFIL [Concomitant]
     Active Substance: SILDENAFIL
     Indication: Erectile dysfunction
     Dosage: (25.0 MILLIGRAM, 1 EVERY 1 DAYS, DOSAGE FORM: TABLETS)
     Route: 048

REACTIONS (7)
  - Febrile neutropenia [Unknown]
  - Discomfort [Unknown]
  - Pallor [Unknown]
  - Dyspnoea [Unknown]
  - Headache [Unknown]
  - Pyrexia [Unknown]
  - Vomiting [Unknown]
